FAERS Safety Report 21902993 (Version 1)
Quarter: 2023Q1

REPORT INFORMATION
  Report Type: Spontaneous
  Country: US (occurrence: None)
  Receive Date: 20230123
  Receipt Date: 20230123
  Transmission Date: 20230417
  Serious: Yes (Other)
  Sender: FDA-Public Use
  Company Number: None

PATIENT
  Age: 81 Year
  Sex: Male
  Weight: 74.2 kg

DRUGS (6)
  1. IBRUTINIB [Suspect]
     Active Substance: IBRUTINIB
     Indication: Chronic lymphocytic leukaemia
     Dosage: FREQUENCY : DAILY;?
     Route: 048
     Dates: start: 20180131, end: 20191115
  2. GAZYVA [Suspect]
     Active Substance: OBINUTUZUMAB
     Indication: Chronic lymphocytic leukaemia
     Dosage: OTHER FREQUENCY : 3 X MONTHLY;?
     Route: 042
     Dates: start: 20180131, end: 20180619
  3. METOPROLOL [Concomitant]
     Active Substance: METOPROLOL
  4. ODANSETRON [Concomitant]
  5. PREGABALIN [Concomitant]
     Active Substance: PREGABALIN
  6. RUXOLITINIB [Concomitant]

REACTIONS (1)
  - Myelofibrosis [None]

NARRATIVE: CASE EVENT DATE: 20221210
